FAERS Safety Report 8367026-7 (Version None)
Quarter: 2012Q2

REPORT INFORMATION
  Report Type: 
  Country: None (occurrence: None)
  Receive Date: 20120515
  Receipt Date: 20120515
  Transmission Date: 20120825
  Serious: No
  Sender: FDA-Public Use
  Company Number: None

PATIENT
  Age: 61 Year
  Sex: Female

DRUGS (8)
  1. PIOGLITAZONE [Concomitant]
  2. AMLODIPINE BESYLATE [Concomitant]
  3. ISONIAZID [Suspect]
     Dates: start: 20110210, end: 20110412
  4. INSULIN GLARGINE [Concomitant]
  5. ASPIRIN [Concomitant]
  6. HYDROCHLOROTHIAZIDE [Concomitant]
  7. INSULIN ASPART [Concomitant]
  8. VALSARTAN [Concomitant]

REACTIONS (12)
  - DECREASED APPETITE [None]
  - ABDOMINAL PAIN [None]
  - JAUNDICE [None]
  - LYMPHADENOPATHY [None]
  - BLOOD ALKALINE PHOSPHATASE INCREASED [None]
  - PRURITUS [None]
  - BLOOD URINE PRESENT [None]
  - FATIGUE [None]
  - ASPARTATE AMINOTRANSFERASE INCREASED [None]
  - DRUG-INDUCED LIVER INJURY [None]
  - NAUSEA [None]
  - FAECES DISCOLOURED [None]
